FAERS Safety Report 6804913-2 (Version None)
Quarter: 2010Q2

REPORT INFORMATION
  Report Type: 
  Country: None (occurrence: None)
  Receive Date: 20100628
  Receipt Date: 20070801
  Transmission Date: 20101027
  Serious: No
  Sender: FDA-Public Use
  Company Number: US-PFIZER INC-2007048307

PATIENT
  Sex: Female
  Weight: 85.73 kg

DRUGS (6)
  1. GEODON [Suspect]
     Indication: BIPOLAR DISORDER
     Dates: start: 20070602
  2. WELLBUTRIN XL [Concomitant]
  3. ETODOLAC [Concomitant]
  4. HYDROCHLOROTHIAZIDE [Concomitant]
  5. LAMICTAL [Concomitant]
  6. ALL OTHER THERAPEUTIC PRODUCTS [Concomitant]

REACTIONS (11)
  - AGITATION [None]
  - ANXIETY [None]
  - ASTHENIA [None]
  - DIARRHOEA [None]
  - INFLUENZA LIKE ILLNESS [None]
  - MALAISE [None]
  - NAUSEA [None]
  - SEDATION [None]
  - SOMNOLENCE [None]
  - VOMITING [None]
  - WEIGHT INCREASED [None]
